FAERS Safety Report 10721741 (Version 1)
Quarter: 2015Q1

REPORT INFORMATION
  Report Type: Spontaneous
  Country: BR (occurrence: BR)
  Receive Date: 20150119
  Receipt Date: 20150119
  Transmission Date: 20150721
  Serious: Yes (Hospitalization)
  Sender: FDA-Public Use
  Company Number: BR-PFIZER INC-2015020039

PATIENT
  Age: 57 Year
  Sex: Female
  Weight: 90 kg

DRUGS (7)
  1. TECTA [Suspect]
     Active Substance: PANTOPRAZOLE MAGNESIUM
     Indication: GASTROOESOPHAGEAL REFLUX DISEASE
     Dosage: 40 MG (1 TABLET), QD
     Route: 048
     Dates: start: 2012
  2. TECTA [Suspect]
     Active Substance: PANTOPRAZOLE MAGNESIUM
     Indication: HIATUS HERNIA
  3. SIILIF [Suspect]
     Active Substance: PINAVERIUM BROMIDE
     Indication: GASTROOESOPHAGEAL REFLUX DISEASE
     Dosage: 1 DF, BID
     Route: 048
     Dates: start: 2012
  4. SIILIF [Suspect]
     Active Substance: PINAVERIUM BROMIDE
     Indication: GASTRITIS
  5. TECTA [Suspect]
     Active Substance: PANTOPRAZOLE MAGNESIUM
     Indication: GASTRITIS
  6. VICTOZA [Concomitant]
     Active Substance: LIRAGLUTIDE
     Dosage: UNK
     Dates: start: 2012
  7. SIILIF [Suspect]
     Active Substance: PINAVERIUM BROMIDE
     Indication: HIATUS HERNIA

REACTIONS (3)
  - Trigeminal neuralgia [Recovered/Resolved]
  - Complex regional pain syndrome [Recovered/Resolved]
  - Disease progression [Recovered/Resolved]

NARRATIVE: CASE EVENT DATE: 201212
